FAERS Safety Report 8302512-7 (Version None)
Quarter: 2012Q2

REPORT INFORMATION
  Report Type: 
  Country: None (occurrence: None)
  Receive Date: 20120420
  Receipt Date: 20120328
  Transmission Date: 20120825
  Serious: Yes (Other)
  Sender: FDA-Public Use
  Company Number: CHPA2012US006174

PATIENT
  Age: 72 Year
  Sex: Female

DRUGS (3)
  1. DRUG THERAPY NOS [Concomitant]
     Indication: GLAUCOMA
  2. BETA BLOCKING AGENTS [Suspect]
  3. EXCEDRIN (MIGRAINE) [Suspect]
     Indication: HEADACHE
     Dosage: 2-4 A DAY
     Route: 048

REACTIONS (4)
  - HEART RATE DECREASED [None]
  - DIZZINESS [None]
  - MUSCLE SPASMS [None]
  - BENIGN RENAL NEOPLASM [None]
